FAERS Safety Report 12234428 (Version 2)
Quarter: 2016Q2

REPORT INFORMATION
  Report Type: Spontaneous
  Country: US (occurrence: US)
  Receive Date: 20160404
  Receipt Date: 20160531
  Transmission Date: 20160815
  Serious: Yes (Death)
  Sender: FDA-Public Use
  Company Number: US-SA-2016SA062036

PATIENT
  Age: 4 Year
  Sex: Male
  Weight: 5.5 kg

DRUGS (5)
  1. RITUXIMAB [Concomitant]
     Active Substance: RITUXIMAB
  2. RITUXIMAB [Concomitant]
     Active Substance: RITUXIMAB
  3. MYOZYME [Suspect]
     Active Substance: ALGLUCOSIDASE ALFA
     Indication: GLYCOGEN STORAGE DISEASE TYPE II
     Route: 042
  4. RITUXIMAB [Concomitant]
     Active Substance: RITUXIMAB
  5. METHOTREXATE [Concomitant]
     Active Substance: METHOTREXATE
     Route: 058

REACTIONS (1)
  - Respiratory failure [Fatal]
